FAERS Safety Report 7133383-2 (Version None)
Quarter: 2010Q4

REPORT INFORMATION
  Report Type: 
  Country: None (occurrence: None)
  Receive Date: 20101202
  Receipt Date: 20101123
  Transmission Date: 20110411
  Serious: Yes (Death)
  Sender: FDA-Public Use
  Company Number: US-CELGENEUS-163-21880-10113012

PATIENT
  Sex: Male

DRUGS (3)
  1. REVLIMID [Suspect]
     Route: 048
     Dates: start: 20100601
  2. REVLIMID [Suspect]
     Route: 048
     Dates: start: 20100801
  3. REVLIMID [Suspect]
     Route: 048
     Dates: start: 20101101, end: 20101101

REACTIONS (4)
  - DEATH [None]
  - PRURITUS [None]
  - RASH [None]
  - SKIN EXFOLIATION [None]
